FAERS Safety Report 13143296 (Version 1)
Quarter: 2017Q1

REPORT INFORMATION
  Report Type: Spontaneous
  Country: FR (occurrence: FR)
  Receive Date: 20170123
  Receipt Date: 20170123
  Transmission Date: 20170428
  Serious: Yes (Hospitalization)
  Sender: FDA-Public Use
  Company Number: FR-CONCORDIA PHARMACEUTICALS INC.-GSH201701-000590

PATIENT
  Age: 74 Year
  Sex: Male

DRUGS (8)
  1. RENAGEL [Concomitant]
     Active Substance: SEVELAMER HYDROCHLORIDE
  2. DEDROGYL [Concomitant]
     Active Substance: CALCIFEDIOL
  3. ATENOLOL. [Suspect]
     Active Substance: ATENOLOL
     Indication: HYPERTENSION
     Route: 048
     Dates: end: 20140701
  4. ALFUZOSIN EXTENDED-RELEASE TABLET 10 MG [Suspect]
     Active Substance: ALFUZOSIN
     Route: 048
     Dates: end: 20140701
  5. KAYEXALATE [Concomitant]
     Active Substance: SODIUM POLYSTYRENE SULFONATE
  6. PREVISCAN [Concomitant]
     Active Substance: FLUINDIONE
  7. KEPPRA [Concomitant]
     Active Substance: LEVETIRACETAM
  8. INEXIUM [Concomitant]
     Active Substance: ESOMEPRAZOLE

REACTIONS (2)
  - Hypotension [Recovered/Resolved]
  - Malaise [Recovered/Resolved]

NARRATIVE: CASE EVENT DATE: 20140701
